FAERS Safety Report 24795318 (Version 1)
Quarter: 2024Q4

REPORT INFORMATION
  Report Type: Spontaneous
  Country: IT (occurrence: IT)
  Receive Date: 20241231
  Receipt Date: 20241231
  Transmission Date: 20250115
  Serious: Yes (Other)
  Sender: MYLAN
  Company Number: None

PATIENT
  Age: 42 Year
  Sex: Female

DRUGS (5)
  1. LYRICA [Suspect]
     Active Substance: PREGABALIN
     Indication: Cervicobrachial syndrome
     Dosage: UNK
     Route: 048
     Dates: start: 20241008
  2. PALEXIA [Suspect]
     Active Substance: TAPENTADOL HYDROCHLORIDE
     Indication: Cervicobrachial syndrome
     Dosage: 50 MILLIGRAM, BID, 1 TABLET AT 8 AM AND 1 TABLET AT 8 PM FOR 2-4 WEEKS
     Route: 048
  3. INDOMETHACIN [Suspect]
     Active Substance: INDOMETHACIN
     Indication: Cervicobrachial syndrome
     Dosage: 50 MILLIGRAM
     Route: 048
  4. BRETOVAMERAN [Suspect]
     Active Substance: BRETOVAMERAN
     Indication: COVID-19 immunisation
     Dosage: 1 DOSAGE FORM, 4A DOSE, COMIRNATY JN.1
     Route: 030
     Dates: start: 20241011, end: 20241011
  5. FLUCELVAX TETRA [Suspect]
     Active Substance: INFLUENZA VIRUS VACCINE
     Indication: Influenza immunisation
     Dosage: 1ST DOSE 2024 (ALREADY RECEIVED FLU VACCINE IN THE YEARS 2021-2022-2023
     Route: 058
     Dates: start: 20241011, end: 20241011

REACTIONS (6)
  - Syncope [Recovering/Resolving]
  - Condition aggravated [Recovering/Resolving]
  - Vaccination site pain [Recovering/Resolving]
  - Neck pain [Recovering/Resolving]
  - Nausea [Recovering/Resolving]
  - Asthenia [Unknown]

NARRATIVE: CASE EVENT DATE: 20241012
